FAERS Safety Report 16967786 (Version 1)
Quarter: 2019Q4

REPORT INFORMATION
  Report Type: Spontaneous
  Country: SE (occurrence: SE)
  Receive Date: 20191028
  Receipt Date: 20191028
  Transmission Date: 20200122
  Serious: Yes (Other)
  Sender: FDA-Public Use
  Company Number: SE-JNJFOC-20191024559

PATIENT
  Sex: Female

DRUGS (2)
  1. CISORDINOL-ACUTARD [Suspect]
     Active Substance: ZUCLOPENTHIXOL ACETATE
     Indication: PSYCHOTIC DISORDER
     Route: 065
  2. HALDOL [Suspect]
     Active Substance: HALOPERIDOL
     Indication: PSYCHOTIC DISORDER
     Route: 065

REACTIONS (9)
  - Product use issue [Unknown]
  - Depressed mood [Unknown]
  - Bedridden [Unknown]
  - Consciousness fluctuating [Unknown]
  - Musculoskeletal stiffness [Unknown]
  - Off label use [Unknown]
  - Transient aphasia [Unknown]
  - Refusal of treatment by patient [Unknown]
  - Anxiety [Unknown]
